FAERS Safety Report 4874806-9 (Version None)
Quarter: 2006Q1

REPORT INFORMATION
  Report Type: 
  Country: None (occurrence: None)
  Receive Date: 20060104
  Receipt Date: 20060104
  Transmission Date: 20060701
  Serious: Yes (Hospitalization, Other)
  Sender: FDA-Public Use
  Company Number: None

PATIENT
  Sex: Male
  Weight: 88.64 kg

DRUGS (6)
  1. TEMOZOLOMIDE [Suspect]
     Indication: GLIOBLASTOMA MULTIFORME
     Dosage: SEE IMAGE
     Dates: start: 20051121, end: 20051125
  2. TEMOZOLOMIDE [Suspect]
     Indication: GLIOBLASTOMA MULTIFORME
     Dosage: SEE IMAGE
     Dates: start: 20051121
  3. IRINOTECAN HCL [Suspect]
     Dosage: SEE IMAGE
     Route: 042
     Dates: start: 20051121, end: 20051206
  4. DECADRON [Concomitant]
  5. NORVASC [Concomitant]
  6. POTASSIUM CHLORIDE [Concomitant]

REACTIONS (12)
  - BALANCE DISORDER [None]
  - DECREASED APPETITE [None]
  - DEPRESSED LEVEL OF CONSCIOUSNESS [None]
  - ELECTROENCEPHALOGRAM ABNORMAL [None]
  - EPILEPSY [None]
  - FATIGUE [None]
  - HYPERACUSIS [None]
  - MOOD ALTERED [None]
  - PHOTOPHOBIA [None]
  - PHYSICAL EXAMINATION ABNORMAL [None]
  - SOMNOLENCE [None]
  - TUMOUR NECROSIS [None]
